FAERS Safety Report 6082973-7 (Version None)
Quarter: 2009Q1

REPORT INFORMATION
  Report Type: 
  Country: None (occurrence: None)
  Receive Date: 20090218
  Receipt Date: 20090209
  Transmission Date: 20090719
  Serious: Yes (Hospitalization, Other)
  Sender: FDA-Public Use
  Company Number: DK-ROXANE LABORATORIES, INC.-2009-RO-00133RO

PATIENT
  Age: 58 Year
  Sex: Female

DRUGS (11)
  1. LITHIUM CARBONATE [Suspect]
     Indication: SUICIDE ATTEMPT
     Dosage: 30000MG
  2. FLUOXETINE [Suspect]
  3. CHLORPROTHIXENE [Suspect]
  4. ORPHENADRINE CITRATE [Suspect]
  5. BROMAZEPAM [Suspect]
  6. ANTIBIOTICS [Concomitant]
     Indication: PNEUMONIA ASPIRATION
  7. TERLIPRESSIN [Concomitant]
     Indication: SHOCK
  8. DOPAMINE HCL [Concomitant]
     Indication: SHOCK
  9. ADRENALINE [Concomitant]
     Indication: SHOCK
  10. NORADRENALINE [Concomitant]
     Indication: SHOCK
  11. PHENYLEPHRINE [Concomitant]
     Indication: SHOCK

REACTIONS (10)
  - ARRHYTHMIA [None]
  - AZOTAEMIA [None]
  - DEAFNESS NEUROSENSORY [None]
  - DISSEMINATED INTRAVASCULAR COAGULATION [None]
  - MULTI-ORGAN FAILURE [None]
  - OLIGURIA [None]
  - PNEUMONIA ASPIRATION [None]
  - SHOCK [None]
  - SUICIDE ATTEMPT [None]
  - THERAPEUTIC AGENT TOXICITY [None]
